FAERS Safety Report 19270882 (Version 3)
Quarter: 2021Q2

REPORT INFORMATION
  Report Type: Report from Study
  Country: None (occurrence: IT)
  Receive Date: 20210518
  Receipt Date: 20210611
  Transmission Date: 20210717
  Serious: Yes (Hospitalization)
  Sender: FDA-Public Use
  Company Number: IT-ABBVIE-21K-083-3908115-00

PATIENT
  Age: 77 Year
  Sex: Female

DRUGS (2)
  1. DUODOPA [Suspect]
     Active Substance: CARBIDOPA\LEVODOPA
     Dosage: TOTAL DAILY DOSE (MG): 1316; PUMP SETTING: MD: 6+3; CR: 3,4 (16H); ED: 2,7
     Route: 050
  2. DUODOPA [Suspect]
     Active Substance: CARBIDOPA\LEVODOPA
     Indication: PARKINSON^S DISEASE
     Dosage: TOTAL DAILY DOSE (MG): 1400; PUMP SETTING: MD: 7+3 CR: 3,6 (16H), ED: 2,7
     Route: 050
     Dates: start: 20171218

REACTIONS (2)
  - Agitation [Recovered/Resolved]
  - Fall [Recovered/Resolved]

NARRATIVE: CASE EVENT DATE: 20210515
